FAERS Safety Report 6183546-8 (Version None)
Quarter: 2009Q2

REPORT INFORMATION
  Report Type: 
  Country: None (occurrence: None)
  Receive Date: 20090508
  Receipt Date: 20090427
  Transmission Date: 20091009
  Serious: Yes (Life-Threatening)
  Sender: FDA-Public Use
  Company Number: DE-RANBAXY-2006RR-02559

PATIENT
  Age: 59 Year
  Sex: Male

DRUGS (3)
  1. METOPROLOL [Suspect]
     Indication: TACHYARRHYTHMIA
     Dosage: 100 MG, UNK
     Route: 065
  2. AMIODARONE HCL [Interacting]
     Indication: TACHYARRHYTHMIA
     Dosage: 1000 MG, UNK
     Route: 042
  3. DIGITOXIN TAB [Interacting]
     Indication: TACHYARRHYTHMIA
     Dosage: .4 MG, QD
     Route: 042

REACTIONS (1)
  - TORSADE DE POINTES [None]
